FAERS Safety Report 25494742 (Version 1)
Quarter: 2025Q2

REPORT INFORMATION
  Report Type: Spontaneous
  Country: US (occurrence: None)
  Receive Date: 20250628
  Receipt Date: 20250628
  Transmission Date: 20250717
  Serious: Yes (Hospitalization)
  Sender: FDA-CTU
  Company Number: None

PATIENT
  Age: 16 Year
  Sex: Male
  Weight: 42.9 kg

DRUGS (2)
  1. CARBOPLATIN [Suspect]
     Active Substance: CARBOPLATIN
     Dates: start: 20250508, end: 20250508
  2. ETOPOSIDE [Concomitant]
     Active Substance: ETOPOSIDE

REACTIONS (6)
  - Confusional state [None]
  - Lethargy [None]
  - Amnesia [None]
  - Depressed level of consciousness [None]
  - Haemorrhagic cerebral infarction [None]
  - Brain scan abnormal [None]

NARRATIVE: CASE EVENT DATE: 20250522
